FAERS Safety Report 24162580 (Version 1)
Quarter: 2024Q3

REPORT INFORMATION
  Report Type: Spontaneous
  Country: CN (occurrence: CN)
  Receive Date: 20240801
  Receipt Date: 20240801
  Transmission Date: 20241017
  Serious: Yes (Life-Threatening, Other)
  Sender: BAYER
  Company Number: CN-BAYER-2024A111081

PATIENT
  Age: 30 Year
  Sex: Male
  Weight: 72 kg

DRUGS (1)
  1. ULTRAVIST [Suspect]
     Active Substance: IOPROMIDE
     Indication: Computerised tomogram kidney
     Dosage: 5 ML, ONCE
     Route: 042
     Dates: start: 20240726, end: 20240726

REACTIONS (6)
  - Face oedema [Recovering/Resolving]
  - Dyspnoea [Recovering/Resolving]
  - Blood pressure increased [None]
  - Heart rate increased [None]
  - Oxygen saturation decreased [None]
  - Respiratory rate increased [None]

NARRATIVE: CASE EVENT DATE: 20240726
